FAERS Safety Report 26088066 (Version 1)
Quarter: 2025Q4

REPORT INFORMATION
  Report Type: Spontaneous
  Country: US (occurrence: None)
  Receive Date: 20251125
  Receipt Date: 20251125
  Transmission Date: 20260118
  Serious: Yes (Hospitalization)
  Sender: FDA-CTU
  Company Number: None

PATIENT
  Age: 85 Year
  Sex: Female
  Weight: 45.8 kg

DRUGS (4)
  1. LINEZOLID [Suspect]
     Active Substance: LINEZOLID
     Indication: Cholecystitis acute
     Dosage: FREQUENCY : TWICE A DAY;?
     Route: 048
     Dates: start: 20251030, end: 20251117
  2. LINEZOLID [Suspect]
     Active Substance: LINEZOLID
     Indication: Bacteraemia
  3. LINEZOLID [Suspect]
     Active Substance: LINEZOLID
     Indication: Enterococcal infection
  4. FLUOXETINE HYDROCHLORIDE [Concomitant]
     Active Substance: FLUOXETINE HYDROCHLORIDE
     Dates: start: 20240922

REACTIONS (5)
  - Hallucinations, mixed [None]
  - Asthenia [None]
  - Faeces soft [None]
  - Frequent bowel movements [None]
  - Lactic acidosis [None]

NARRATIVE: CASE EVENT DATE: 20251111
